FAERS Safety Report 6868889-4 (Version None)
Quarter: 2010Q3

REPORT INFORMATION
  Report Type: 
  Country: None (occurrence: None)
  Receive Date: 20100721
  Receipt Date: 20100721
  Transmission Date: 20110219
  Serious: Yes (Other)
  Sender: FDA-Public Use
  Company Number: None

PATIENT

DRUGS (1)
  1. KETAMINE HCL [Suspect]
     Indication: SEDATION
     Dates: start: 20100601, end: 20100720

REACTIONS (2)
  - DRUG EFFECT DECREASED [None]
  - PRODUCT QUALITY ISSUE [None]
